FAERS Safety Report 12926764 (Version 1)
Quarter: 2016Q4

REPORT INFORMATION
  Report Type: Spontaneous
  Country: JP (occurrence: JP)
  Receive Date: 20161109
  Receipt Date: 20161109
  Transmission Date: 20170207
  Serious: Yes (Death, Hospitalization, Other)
  Sender: FDA-Public Use
  Company Number: JP-APOPHARMA USA, INC.-2016AP014323

PATIENT
  Age: 40 Year
  Sex: Male

DRUGS (2)
  1. FLUDARABINE [Concomitant]
     Active Substance: FLUDARABINE PHOSPHATE
     Indication: STEM CELL TRANSPLANT
     Route: 065
  2. ALKERAN [Suspect]
     Active Substance: MELPHALAN
     Indication: STEM CELL TRANSPLANT
     Dosage: UNK
     Route: 065

REACTIONS (6)
  - Respiratory failure [Fatal]
  - Pneumothorax [Not Recovered/Not Resolved]
  - Pulmonary alveolar haemorrhage [Fatal]
  - Staphylococcal bacteraemia [Fatal]
  - Multiple organ dysfunction syndrome [Fatal]
  - Interstitial lung disease [Fatal]
